FAERS Safety Report 4980930-2 (Version None)
Quarter: 2006Q2

REPORT INFORMATION
  Report Type: 
  Country: None (occurrence: None)
  Receive Date: 20060424
  Receipt Date: 20050823
  Transmission Date: 20061013
  Serious: Yes (Disabling, Other)
  Sender: FDA-Public Use
  Company Number: US-MERCK-0508USA03899

PATIENT
  Age: 59 Year
  Sex: Female
  Weight: 70 kg

DRUGS (2)
  1. VIOXX [Suspect]
     Indication: PAIN
     Route: 048
     Dates: start: 20010101, end: 20030501
  2. VIOXX [Suspect]
     Indication: ARTHRITIS
     Route: 048
     Dates: start: 20010101, end: 20030501

REACTIONS (5)
  - ANAEMIA [None]
  - BACK DISORDER [None]
  - INJURY [None]
  - MYOCARDIAL INFARCTION [None]
  - PAIN [None]
